FAERS Safety Report 4783084-0 (Version None)
Quarter: 2005Q3

REPORT INFORMATION
  Report Type: 
  Country: None (occurrence: None)
  Receive Date: 20050928
  Receipt Date: 20050928
  Transmission Date: 20060218
  Serious: Yes (Hospitalization)
  Sender: FDA-Public Use
  Company Number: None

PATIENT
  Age: 53 Year
  Sex: Male
  Weight: 57.4 kg

DRUGS (2)
  1. RIBASPHERE [Suspect]
     Indication: HEPATITIS C
     Dosage: 600 MG TID PO
     Route: 048
     Dates: start: 20050126, end: 20050406
  2. INTERFERON [Suspect]
     Indication: HEPATITIS C
     Dosage: SQ
     Dates: start: 20050126, end: 20050406

REACTIONS (8)
  - ASTHENIA [None]
  - CHILLS [None]
  - DYSPNOEA [None]
  - FATIGUE [None]
  - FEELING HOT AND COLD [None]
  - HYPERHIDROSIS [None]
  - PRODUCTIVE COUGH [None]
  - PYREXIA [None]
